FAERS Safety Report 17080650 (Version 1)
Quarter: 2019Q4

REPORT INFORMATION
  Report Type: Report from Study
  Country: US (occurrence: US)
  Receive Date: 20191127
  Receipt Date: 20191127
  Transmission Date: 20200122
  Serious: Yes (Other)
  Sender: FDA-Public Use
  Company Number: US-ROCHE-2298752

PATIENT
  Sex: Male
  Weight: 26 kg

DRUGS (3)
  1. NUTROPIN AQ [Suspect]
     Active Substance: SOMATROPIN
     Indication: GROWTH RETARDATION
     Route: 058
     Dates: start: 20140320
  2. RANITIDINE. [Concomitant]
     Active Substance: RANITIDINE
     Indication: VOMITING
  3. RANITIDINE. [Concomitant]
     Active Substance: RANITIDINE
     Indication: NAUSEA
     Dosage: 75 MG, 5 ML ORAL BID 300 ML
     Route: 048
     Dates: start: 20190211

REACTIONS (2)
  - Epiphyses premature fusion [Unknown]
  - Chest pain [Unknown]
